FAERS Safety Report 25710655 (Version 1)
Quarter: 2025Q3

REPORT INFORMATION
  Report Type: Report from Study
  Country: CA (occurrence: CA)
  Receive Date: 20250821
  Receipt Date: 20250821
  Transmission Date: 20251021
  Serious: Yes (Other)
  Sender: JOHNSON AND JOHNSON
  Company Number: CA-JNJFOC-20250821859

PATIENT
  Age: 12 Year
  Sex: Female

DRUGS (1)
  1. REMICADE [Suspect]
     Active Substance: INFLIXIMAB
     Indication: Colitis ulcerative
     Dosage: 5 VIALS
     Route: 041
     Dates: start: 20250717

REACTIONS (4)
  - Coagulation time shortened [Unknown]
  - Infusion site pain [Unknown]
  - Dehydration [Recovering/Resolving]
  - Blood viscosity increased [Unknown]
